FAERS Safety Report 6690315-9 (Version None)
Quarter: 2010Q2

REPORT INFORMATION
  Report Type: 
  Country: None (occurrence: None)
  Receive Date: 20100421
  Receipt Date: 20100414
  Transmission Date: 20101027
  Serious: Yes (Hospitalization)
  Sender: FDA-Public Use
  Company Number: PHHO2010SE05613

PATIENT
  Sex: Male
  Weight: 63.2 kg

DRUGS (6)
  1. RAD 666 [Suspect]
     Indication: CARCINOID TUMOUR
     Dosage: 10 MG
     Route: 048
  2. AFINITOR [Suspect]
     Indication: CARCINOID TUMOUR
     Dosage: DOUBLE BLIND
     Route: 048
     Dates: start: 20080123, end: 20091005
  3. BLINDED NO TREATMENT RECEIVED NOMED [Suspect]
     Indication: CARCINOID TUMOUR
     Dosage: DOUBLE BLIND
     Route: 048
     Dates: start: 20080123, end: 20091005
  4. BLINDED PLACEBO COMP-PLA+ [Suspect]
     Indication: CARCINOID TUMOUR
     Dosage: DOUBLE BLIND
     Route: 048
     Dates: start: 20080123, end: 20091005
  5. SANDOSTATIN LAR [Concomitant]
     Indication: CARCINOID TUMOUR
  6. TPN [Concomitant]
     Indication: SHORT-BOWEL SYNDROME

REACTIONS (6)
  - ALANINE AMINOTRANSFERASE INCREASED [None]
  - ASPARTATE AMINOTRANSFERASE INCREASED [None]
  - BLOOD ALKALINE PHOSPHATASE INCREASED [None]
  - BLOOD BILIRUBIN INCREASED [None]
  - MALIGNANT NEOPLASM PROGRESSION [None]
  - METASTATIC CARCINOID TUMOUR [None]
